FAERS Safety Report 8542454-5 (Version None)
Quarter: 2012Q3

REPORT INFORMATION
  Report Type: 
  Country: None (occurrence: None)
  Receive Date: 20120726
  Receipt Date: 20110720
  Transmission Date: 20120928
  Serious: Yes (Other)
  Sender: FDA-Public Use
  Company Number: US-ASTRAZENECA-2008UW01403

PATIENT
  Age: 17686 Day
  Sex: Female
  Weight: 112.9 kg

DRUGS (10)
  1. SEROQUEL [Suspect]
     Route: 048
     Dates: start: 20060801, end: 20070901
  2. CATAPRES [Concomitant]
     Route: 048
     Dates: start: 20050316
  3. THORAZINE [Concomitant]
     Dates: start: 20070101
  4. VALIUM [Concomitant]
     Indication: SLEEP DISORDER
     Route: 048
     Dates: start: 20050316
  5. ABILIFY [Concomitant]
     Route: 048
     Dates: start: 20070101
  6. TAMOXIFEN [Concomitant]
     Route: 048
     Dates: start: 20050907
  7. AMBIEN [Concomitant]
     Route: 048
     Dates: start: 20060308
  8. CLOZARIL [Concomitant]
     Route: 048
     Dates: start: 20070101
  9. DYAZIDE [Concomitant]
     Dosage: DOSE: 25/37.5 DAILY
     Route: 048
     Dates: start: 20050316
  10. SEROQUEL [Suspect]
     Indication: SLEEP DISORDER
     Route: 048
     Dates: start: 20060203

REACTIONS (5)
  - DIABETIC COMA [None]
  - TYPE 2 DIABETES MELLITUS [None]
  - BLOOD CHOLESTEROL INCREASED [None]
  - DIABETIC KETOACIDOSIS [None]
  - HYPERLIPIDAEMIA [None]
